FAERS Safety Report 19455204 (Version 1)
Quarter: 2021Q2

REPORT INFORMATION
  Report Type: Spontaneous
  Country: US (occurrence: US)
  Receive Date: 20210623
  Receipt Date: 20210623
  Transmission Date: 20210717
  Serious: No
  Sender: FDA-Public Use
  Company Number: US-ROCHE-2828622

PATIENT

DRUGS (1)
  1. HERCEPTIN HYLECTA [Suspect]
     Active Substance: HYALURONIDASE-OYSK\TRASTUZUMAB
     Indication: PRODUCT USED FOR UNKNOWN INDICATION
     Dosage: ONGOING: UNKNOWN
     Route: 058

REACTIONS (2)
  - No adverse event [Unknown]
  - Product temperature excursion issue [Unknown]

NARRATIVE: CASE EVENT DATE: 20210507
